FAERS Safety Report 17872375 (Version 1)
Quarter: 2020Q2

REPORT INFORMATION
  Report Type: Spontaneous
  Country: DE (occurrence: DE)
  Receive Date: 20200608
  Receipt Date: 20200608
  Transmission Date: 20200714
  Serious: Yes (Other)
  Sender: FDA-Public Use
  Company Number: NVSC2020DE158345

PATIENT

DRUGS (1)
  1. TRIAMCINOLONE [Suspect]
     Active Substance: TRIAMCINOLONE
     Indication: OSTEOARTHRITIS
     Dosage: 40 MG
     Route: 065

REACTIONS (2)
  - Product use in unapproved indication [Unknown]
  - Syncope [Unknown]
